FAERS Safety Report 5427093-7 (Version None)
Quarter: 2007Q3

REPORT INFORMATION
  Report Type: 
  Country: None (occurrence: None)
  Receive Date: 20070824
  Receipt Date: 20070824
  Transmission Date: 20080115
  Serious: No
  Sender: FDA-Public Use
  Company Number: None

PATIENT
  Age: 9 Day
  Sex: Female
  Weight: 0.71 kg

DRUGS (2)
  1. CEFOTAXIME SODIUM [Suspect]
     Indication: INFECTION
     Dosage: 36MG IV Q12HOURS
     Route: 042
     Dates: start: 20070410, end: 20070411
  2. TPN [Concomitant]

REACTIONS (1)
  - BLOOD CREATINE INCREASED [None]
